FAERS Safety Report 25545962 (Version 1)
Quarter: 2025Q3

REPORT INFORMATION
  Report Type: Spontaneous
  Country: US (occurrence: US)
  Receive Date: 20250712
  Receipt Date: 20250712
  Transmission Date: 20251021
  Serious: Yes (Hospitalization, Other)
  Sender: AMGEN
  Company Number: US-AMGEN-USASP2025130414

PATIENT
  Age: 1 Year
  Sex: Female
  Weight: 9.2 kg

DRUGS (3)
  1. RITUXIMAB [Suspect]
     Active Substance: RITUXIMAB
     Indication: Immune tolerance induction
     Route: 065
  2. Immunoglobulin [Concomitant]
     Indication: Immune tolerance induction
     Route: 040
  3. TOLODODEKIN ALFA [Concomitant]
     Active Substance: TOLODODEKIN ALFA
     Indication: Immune tolerance induction

REACTIONS (4)
  - Staphylococcal bacteraemia [Unknown]
  - Subdural haematoma [Unknown]
  - Sepsis [Unknown]
  - Off label use [Unknown]
